FAERS Safety Report 10619628 (Version 2)
Quarter: 2014Q4

REPORT INFORMATION
  Report Type: Other
  Country: GB (occurrence: GB)
  Receive Date: 20141202
  Receipt Date: 20141202
  Transmission Date: 20150529
  Serious: Yes (Other)
  Sender: FDA-Public Use
  Company Number: GB-BRISTOL-MYERS SQUIBB COMPANY-20822847

PATIENT
  Age: 62 Year
  Sex: Female

DRUGS (1)
  1. MITOMYCIN C [Suspect]
     Active Substance: MITOMYCIN
     Indication: BLADDER TRANSITIONAL CELL CARCINOMA
     Route: 043

REACTIONS (4)
  - Pelvic pain [Recovered/Resolved]
  - Extravasation [Unknown]
  - Urinary tract infection [Recovered/Resolved]
  - Ureteric obstruction [Unknown]
